FAERS Safety Report 6088622-6 (Version None)
Quarter: 2009Q1

REPORT INFORMATION
  Report Type: 
  Country: None (occurrence: None)
  Receive Date: 20090224
  Receipt Date: 20090218
  Transmission Date: 20090719
  Serious: Yes (Hospitalization, Other)
  Sender: FDA-Public Use
  Company Number: CN-ASTRAZENECA-2008AP00497

PATIENT
  Age: 66 Year
  Sex: Male

DRUGS (2)
  1. IRESSA [Suspect]
     Indication: LUNG NEOPLASM MALIGNANT
     Route: 048
     Dates: start: 20071206, end: 20080101
  2. IRESSA [Suspect]
     Route: 048
     Dates: start: 20080201

REACTIONS (6)
  - DERMATITIS ACNEIFORM [None]
  - DRY SKIN [None]
  - HAEMATURIA [None]
  - HEPATIC FUNCTION ABNORMAL [None]
  - MICTURITION URGENCY [None]
  - RASH PRURITIC [None]
